FAERS Safety Report 19903162 (Version 1)
Quarter: 2021Q4

REPORT INFORMATION
  Report Type: Spontaneous
  Country: ES (occurrence: ES)
  Receive Date: 20211001
  Receipt Date: 20211001
  Transmission Date: 20220303
  Serious: Yes (Hospitalization)
  Sender: FDA-Public Use
  Company Number: None

PATIENT
  Age: 87 Year
  Sex: Male

DRUGS (2)
  1. ATORVASTATIN [Suspect]
     Active Substance: ATORVASTATIN
     Indication: Dyslipidaemia
     Dosage: 20 MILLIGRAM DAILY; 0-0-1
     Route: 048
     Dates: start: 20190305, end: 20210824
  2. COLCHICINE\DICYCLOMINE HYDROCHLORIDE [Suspect]
     Active Substance: COLCHICINE\DICYCLOMINE HYDROCHLORIDE
     Indication: Gout
     Dosage: 2 DOSAGE FORMS DAILY;
     Route: 048
     Dates: start: 20210817, end: 20210824

REACTIONS (3)
  - Blood creatine phosphokinase increased [Recovered/Resolved]
  - Hypertransaminasaemia [Recovered/Resolved]
  - Dermatitis [Recovering/Resolving]

NARRATIVE: CASE EVENT DATE: 20210817
